FAERS Safety Report 4379598-8 (Version None)
Quarter: 2004Q2

REPORT INFORMATION
  Report Type: 
  Country: None (occurrence: None)
  Receive Date: 20040414
  Receipt Date: 20040211
  Transmission Date: 20050107
  Serious: Yes (Other)
  Sender: FDA-Public Use
  Company Number: 2004S1000024

PATIENT
  Age: 75 Year
  Weight: 100 kg

DRUGS (1)
  1. CUBICIN [Suspect]
     Indication: SUBACUTE ENDOCARDITIS
     Dosage: 600 MG; QOD; IV
     Route: 042
     Dates: start: 20040107, end: 20040117

REACTIONS (1)
  - BLOOD CREATININE INCREASED [None]
